FAERS Safety Report 18486476 (Version 1)
Quarter: 2020Q4

REPORT INFORMATION
  Report Type: Spontaneous
  Country: GT (occurrence: GT)
  Receive Date: 20201110
  Receipt Date: 20201110
  Transmission Date: 20210114
  Serious: Yes (Hospitalization)
  Sender: FDA-Public Use
  Company Number: GT-PFIZER INC-2020199692

PATIENT
  Age: 73 Year
  Sex: Female

DRUGS (1)
  1. XELJANZ [Suspect]
     Active Substance: TOFACITINIB CITRATE
     Dosage: UNK

REACTIONS (12)
  - Gastrointestinal infection [Unknown]
  - Dizziness [Unknown]
  - Weight decreased [Unknown]
  - Gait disturbance [Unknown]
  - Peripheral swelling [Unknown]
  - Abdominal discomfort [Unknown]
  - Fall [Unknown]
  - Dehydration [Unknown]
  - Arthralgia [Unknown]
  - Gastric disorder [Unknown]
  - Pain in extremity [Unknown]
  - Pain [Unknown]
